FAERS Safety Report 4774595-2 (Version None)
Quarter: 2005Q3

REPORT INFORMATION
  Report Type: 
  Country: None (occurrence: None)
  Receive Date: 20050919
  Receipt Date: 20050902
  Transmission Date: 20060218
  Serious: Yes (Life-Threatening, Hospitalization)
  Sender: FDA-Public Use
  Company Number: RENA-11473

PATIENT
  Age: 63 Year
  Sex: Female

DRUGS (6)
  1. PHOSBLOCK -  250 MG TABLET [Suspect]
     Indication: HYPERPHOSPHATAEMIA
     Dosage: 5.25 G DAILY PO
     Route: 048
  2. REBAMIPIDE [Concomitant]
  3. NIFEDIPINE [Concomitant]
  4. URAPIDIL [Concomitant]
  5. AMOSULALOL HYDROCHLORIDE [Concomitant]
  6. CALCIUM CARBONATE (PRECIPITATED) [Concomitant]

REACTIONS (1)
  - INTESTINAL OBSTRUCTION [None]
